FAERS Safety Report 9394389 (Version 2)
Quarter: 2013Q3

REPORT INFORMATION
  Report Type: Report from Study
  Country: US (occurrence: US)
  Receive Date: 20130711
  Receipt Date: 20130925
  Transmission Date: 20140515
  Serious: Yes (Death, Hospitalization, Other)
  Sender: FDA-Public Use
  Company Number: US-TEVA-418025USA

PATIENT
  Age: 68 Year
  Sex: Female

DRUGS (1)
  1. CLOZAPINE [Suspect]
     Indication: PSYCHOTIC DISORDER
     Route: 048

REACTIONS (5)
  - Choking [Fatal]
  - Unresponsive to stimuli [Unknown]
  - Cardiac arrest [Unknown]
  - Bradycardia [Unknown]
  - Myocardial infarction [Unknown]
